FAERS Safety Report 19002977 (Version 2)
Quarter: 2021Q4

REPORT INFORMATION
  Report Type: Report from Study
  Country: AU (occurrence: AU)
  Receive Date: 20210312
  Receipt Date: 20211111
  Transmission Date: 20220303
  Serious: Yes (Hospitalization)
  Sender: FDA-Public Use
  Company Number: AU-SA-2020SA311367

PATIENT
  Age: 77 Year
  Sex: Female

DRUGS (17)
  1. ISATUXIMAB [Suspect]
     Active Substance: ISATUXIMAB
     Indication: Plasma cell myeloma
     Dosage: 650 MG,(START DATE:06-NOV-2020 00:00)
     Route: 065
     Dates: end: 20210128
  2. LENALIDOMIDE [Suspect]
     Active Substance: LENALIDOMIDE
     Indication: Plasma cell myeloma
     Dosage: 15 MG, (START DATE WAS 06-NOV-2020)
     Route: 065
     Dates: end: 20210901
  3. DEXAMETHASONE [Suspect]
     Active Substance: DEXAMETHASONE
     Indication: Plasma cell myeloma
     Dosage: 20 MG
     Route: 065
     Dates: start: 20200507, end: 20210204
  4. DEXAMETHASONE [Suspect]
     Active Substance: DEXAMETHASONE
     Dosage: 20 MG
     Route: 065
     Dates: start: 20201106, end: 20210902
  5. VALTREX [Concomitant]
     Active Substance: VALACYCLOVIR HYDROCHLORIDE
     Indication: Antiviral treatment
     Dosage: 500 MG, BID
     Route: 048
     Dates: start: 202005
  6. CHOLECALCIFEROL [Concomitant]
     Active Substance: CHOLECALCIFEROL
     Indication: Prophylaxis
     Dosage: 500 MG, BID
     Route: 065
     Dates: start: 2015
  7. FILGRASTIM [Concomitant]
     Active Substance: FILGRASTIM
     Indication: Neutropenia
     Dosage: 300 UG
     Route: 058
     Dates: start: 20201021
  8. IRBESARTAN [Concomitant]
     Active Substance: IRBESARTAN
     Dosage: 37.5 MG, HS
     Dates: start: 20200908
  9. PANTOPRAZOLE [Concomitant]
     Active Substance: PANTOPRAZOLE
     Indication: Gastrooesophageal reflux disease
     Dosage: 80 MG, QD
     Route: 048
     Dates: start: 1995
  10. CALCIUM CARBONATE [Concomitant]
     Active Substance: CALCIUM CARBONATE
     Dosage: 1500 MG, QD
     Route: 065
  11. METOPROLOL [Concomitant]
     Active Substance: METOPROLOL
     Indication: Supraventricular tachycardia
     Dosage: 25 MG, BID
     Route: 048
     Dates: start: 2014
  12. FUROSEMIDE [Concomitant]
     Active Substance: FUROSEMIDE
     Indication: Renal amyloidosis
     Dosage: 20 MG, QD
     Dates: start: 20200908
  13. FUROSEMIDE [Concomitant]
     Active Substance: FUROSEMIDE
     Dosage: 40 MG
     Route: 048
     Dates: start: 20210612
  14. GASTROGEL ANTACID [Concomitant]
     Indication: Gastrooesophageal reflux disease
     Dosage: 20 ML, PRN
     Dates: start: 20210217
  15. ELECTROLYTES NOS [Concomitant]
     Active Substance: ELECTROLYTES NOS
     Dosage: UNK, FLUIDS
     Route: 042
     Dates: start: 20210210
  16. MAGNESIUM ASPARTATE [Concomitant]
     Active Substance: MAGNESIUM ASPARTATE
     Indication: Muscle spasms
     Dosage: 1000 MG
     Route: 048
     Dates: start: 20210510
  17. MAXOLON [Concomitant]
     Active Substance: METOCLOPRAMIDE HYDROCHLORIDE
     Indication: Nausea
     Dosage: 30 MG
     Route: 048
     Dates: start: 20210515

REACTIONS (3)
  - Bacterial colitis [Recovered/Resolved]
  - Chest pain [Unknown]
  - Pneumonia [Recovered/Resolved with Sequelae]

NARRATIVE: CASE EVENT DATE: 20201029
